FAERS Safety Report 20951441 (Version 1)
Quarter: 2022Q2

REPORT INFORMATION
  Report Type: Spontaneous
  Country: US (occurrence: None)
  Receive Date: 20220610
  Receipt Date: 20220610
  Transmission Date: 20220720
  Serious: Yes (Other)
  Sender: FDA-Public Use
  Company Number: None

PATIENT
  Age: 28 Year
  Sex: Male

DRUGS (2)
  1. BACTERIOSTATIC WATER [Suspect]
     Active Substance: WATER
     Indication: Migraine
     Route: 030
     Dates: start: 20220602
  2. BOTOX [Concomitant]
     Active Substance: ONABOTULINUMTOXINA
     Dates: start: 20220602

REACTIONS (4)
  - Urticaria [None]
  - Pain [None]
  - Product preparation issue [None]
  - Product distribution issue [None]

NARRATIVE: CASE EVENT DATE: 20220602
